FAERS Safety Report 6989161-8 (Version None)
Quarter: 2010Q3

REPORT INFORMATION
  Report Type: 
  Country: None (occurrence: None)
  Receive Date: 20100916
  Receipt Date: 20090914
  Transmission Date: 20110219
  Serious: Yes (Death)
  Sender: FDA-Public Use
  Company Number: ZA-PFIZER INC-2009261346

PATIENT
  Age: 77 Year
  Sex: Female

DRUGS (2)
  1. LYRICA [Suspect]
     Dosage: 75 MG, 1X/DAY FOR 1 WK
     Route: 048
  2. LYRICA [Suspect]
     Dosage: 25 MG, 1X/DAY FOR 1 WK
     Route: 048

REACTIONS (2)
  - DEATH [None]
  - DIZZINESS [None]
